FAERS Safety Report 11064204 (Version 1)
Quarter: 2015Q2

REPORT INFORMATION
  Report Type: Spontaneous
  Country: US (occurrence: US)
  Receive Date: 20150424
  Receipt Date: 20150424
  Transmission Date: 20150821
  Serious: No
  Sender: FDA-Public Use
  Company Number: US-TEVA-558222USA

PATIENT
  Age: 44 Year
  Sex: Female
  Weight: 51.3 kg

DRUGS (2)
  1. PARAGARD T 380A [Suspect]
     Active Substance: COPPER
     Route: 015
     Dates: start: 20150415
  2. PARAGARD T 380A [Suspect]
     Active Substance: COPPER
     Indication: CONTRACEPTION
     Route: 015
     Dates: start: 20150415, end: 20150415

REACTIONS (1)
  - Cough [Recovered/Resolved]

NARRATIVE: CASE EVENT DATE: 20150415
